FAERS Safety Report 9308128 (Version 2)
Quarter: 2013Q2

REPORT INFORMATION
  Report Type: Report from Study
  Country: JP (occurrence: JP)
  Receive Date: 20130524
  Receipt Date: 20130613
  Transmission Date: 20140414
  Serious: Yes (Death, Life-Threatening)
  Sender: FDA-Public Use
  Company Number: JP-NAPPMUNDI-GBR-2013-0014004

PATIENT
  Age: 72 Year
  Sex: Male

DRUGS (14)
  1. OXYCODONE HCL PR TABLET 20 MG [Suspect]
     Indication: CANCER PAIN
     Dosage: 20 MG, DAILY
     Route: 048
  2. OXYCODONE HCL IR POWDER 0.5% [Suspect]
     Indication: CANCER PAIN
     Dosage: 2.5 MG, PRN
     Route: 048
  3. GLIMEPIRIDE [Suspect]
     Indication: DIABETES MELLITUS
     Dosage: 1 MG, DAILY
     Route: 048
  4. ALLOZYM [Suspect]
     Indication: HYPERURICAEMIA
     Dosage: 100 MG, DAILY
     Route: 048
  5. LANSOPRAZOLE [Suspect]
     Indication: GASTRITIS PROPHYLAXIS
     Dosage: 15 MG, DAILY
     Route: 048
  6. BIO-THREE [Suspect]
     Indication: DIARRHOEA
     Dosage: 3 G, DAILY
     Route: 048
  7. LOPEMIN [Suspect]
     Indication: DIARRHOEA
     Dosage: 6 MG, DAILY
     Route: 048
  8. DIHYDROCODEINE PHOSPHATE [Suspect]
     Indication: DIARRHOEA
     Dosage: 4.5 G, DAILY
     Route: 048
  9. TALION /01587402/ [Suspect]
     Indication: SEASONAL ALLERGY
     Dosage: 5 MG, DAILY
     Route: 048
     Dates: end: 20130409
  10. LANTUS [Suspect]
     Indication: DIABETES MELLITUS
     Dosage: 12 IU, DAILY
     Route: 058
  11. NOVORAPID [Suspect]
     Indication: DIABETES MELLITUS
     Dosage: 18 IU, DAILY
     Route: 058
  12. MOHRUS [Suspect]
     Indication: SPINAL COLUMN STENOSIS
     Dosage: 40 MG, DAILY
     Route: 062
  13. INSULIN ASPART [Concomitant]
     Dosage: 6-5-4-0 UNIT, UNK
  14. INSULIN GLARGINE [Concomitant]
     Dosage: 12-0-0-0 UNIT, UNK

REACTIONS (3)
  - Sudden death [Fatal]
  - Hypoglycaemia [Fatal]
  - Altered state of consciousness [Fatal]
